FAERS Safety Report 10358392 (Version 1)
Quarter: 2014Q3

REPORT INFORMATION
  Report Type: Spontaneous
  Country: FR (occurrence: None)
  Receive Date: 20140730
  Receipt Date: 20140730
  Transmission Date: 20150326
  Serious: Yes (Death, Life-Threatening, Hospitalization)
  Sender: FDA-Public Use
  Company Number: NL01PV14.36674

PATIENT
  Age: 78 Year
  Sex: Male

DRUGS (3)
  1. BICALUTAMIDE MYLAN (BICALUTAMIDE) [Suspect]
     Active Substance: BICALUTAMIDE
     Route: 048
     Dates: start: 20080515, end: 20081018
  2. ENANTONE /00726901/ (LEUPRORELIN) SOLUTION FOR INJECTION [Suspect]
     Active Substance: LEUPROLIDE
     Route: 030
     Dates: start: 200906
  3. TAMSULOSIN WINTHROP LP (TAMSULOSINE) CAPSULE [Suspect]
     Active Substance: TAMSULOSIN
     Route: 048
     Dates: start: 200801, end: 20081028

REACTIONS (9)
  - Hepatocellular injury [None]
  - Respiratory arrest [None]
  - Dyspnoea [None]
  - Hepatic encephalopathy [None]
  - Ascites [None]
  - Renal impairment [None]
  - Pneumonia [None]
  - Oedema peripheral [None]
  - Hepatitis fulminant [None]

NARRATIVE: CASE EVENT DATE: 20081005
